FAERS Safety Report 25135853 (Version 1)
Quarter: 2025Q1

REPORT INFORMATION
  Report Type: Other
  Country: CH (occurrence: CH)
  Receive Date: 20250328
  Receipt Date: 20250328
  Transmission Date: 20250409
  Serious: Yes (Hospitalization, Disabling, Other)
  Sender: BRECKENRIDGE PHARMACEUTICAL, INC.
  Company Number: CH-Breckenridge Pharmaceutical, Inc.-2173848

PATIENT
  Age: 75 Year
  Sex: Male

DRUGS (1)
  1. AMITRIPTYLINE [Suspect]
     Active Substance: AMITRIPTYLINE

REACTIONS (4)
  - Generalised tonic-clonic seizure [Recovering/Resolving]
  - Hypokalaemia [Unknown]
  - Hyponatraemia [Unknown]
  - Drug withdrawal syndrome [Recovering/Resolving]
